FAERS Safety Report 6981455-5 (Version None)
Quarter: 2010Q3

REPORT INFORMATION
  Report Type: 
  Country: None (occurrence: None)
  Receive Date: 20100914
  Receipt Date: 20100910
  Transmission Date: 20110219
  Serious: Yes (Hospitalization)
  Sender: FDA-Public Use
  Company Number: AU-CEPHALON-2010004805

PATIENT
  Sex: Male
  Weight: 38 kg

DRUGS (8)
  1. TREANDA [Suspect]
     Indication: ACUTE LEUKAEMIA
     Route: 041
     Dates: start: 20100908, end: 20100909
  2. ALLOPURINOL [Concomitant]
     Indication: PROPHYLAXIS
     Dates: start: 20100907
  3. COTRIM [Concomitant]
     Indication: PROPHYLAXIS
     Dates: start: 20100907
  4. NYSTATIN [Concomitant]
     Indication: PYREXIA
     Dates: start: 20100909
  5. PIPERACILLIN AND TAZOBACTAM [Concomitant]
     Indication: PYREXIA
     Dates: start: 20100909, end: 20100910
  6. ACETAMINOPHEN [Concomitant]
     Indication: PYREXIA
     Dates: start: 20100907
  7. ONDANSETRON [Concomitant]
     Indication: PROPHYLAXIS OF NAUSEA AND VOMITING
     Dates: start: 20100908
  8. METOCLOPRAMIDE [Concomitant]
     Indication: PROPHYLAXIS OF NAUSEA AND VOMITING
     Dates: start: 20100908

REACTIONS (1)
  - RENAL IMPAIRMENT [None]
